FAERS Safety Report 6293472-1 (Version None)
Quarter: 2009Q3

REPORT INFORMATION
  Report Type: 
  Country: None (occurrence: None)
  Receive Date: 20090803
  Receipt Date: 20090723
  Transmission Date: 20100115
  Serious: Yes (Hospitalization, Other)
  Sender: FDA-Public Use
  Company Number: US-BIOGENIDEC-2009BI011560

PATIENT
  Age: 48 Year
  Sex: Female

DRUGS (7)
  1. AVONEX [Suspect]
     Indication: MULTIPLE SCLEROSIS
     Route: 030
     Dates: start: 19990101
  2. AVONEX [Suspect]
     Route: 030
     Dates: start: 20090201
  3. AVONEX [Suspect]
     Route: 030
     Dates: start: 19970101, end: 19990101
  4. WARFARIN SODIUM [Concomitant]
     Indication: DRUG USE FOR UNKNOWN INDICATION
  5. PREMPRO [Concomitant]
     Indication: DRUG USE FOR UNKNOWN INDICATION
  6. MACROBID [Concomitant]
     Indication: DRUG USE FOR UNKNOWN INDICATION
  7. FOSAMAX [Concomitant]
     Indication: DRUG USE FOR UNKNOWN INDICATION

REACTIONS (3)
  - CHOLECYSTECTOMY [None]
  - DIARRHOEA [None]
  - PULMONARY EMBOLISM [None]
